FAERS Safety Report 20174159 (Version 1)
Quarter: 2021Q4

REPORT INFORMATION
  Report Type: Spontaneous
  Country: US (occurrence: US)
  Receive Date: 20211213
  Receipt Date: 20211213
  Transmission Date: 20220304
  Serious: Yes (Other)
  Sender: FDA-Public Use
  Company Number: US-GILEAD-2021-0560410

PATIENT

DRUGS (1)
  1. VIREAD [Suspect]
     Active Substance: TENOFOVIR DISOPROXIL FUMARATE
     Indication: Product used for unknown indication
     Dosage: UNK
     Route: 048
     Dates: start: 20030101, end: 20131231

REACTIONS (5)
  - Multiple fractures [Unknown]
  - Chronic kidney disease [Unknown]
  - Fanconi syndrome [Unknown]
  - Renal failure [Unknown]
  - Bone density decreased [Unknown]
